FAERS Safety Report 25329952 (Version 1)
Quarter: 2025Q2

REPORT INFORMATION
  Report Type: Spontaneous
  Country: FR (occurrence: FR)
  Receive Date: 20250519
  Receipt Date: 20250519
  Transmission Date: 20250716
  Serious: Yes (Other)
  Sender: ACCORD
  Company Number: None

PATIENT
  Age: 49 Year
  Sex: Female
  Weight: 77 kg

DRUGS (2)
  1. TOPIRAMATE [Suspect]
     Active Substance: TOPIRAMATE
     Indication: Migraine
     Dates: start: 20240930, end: 20241215
  2. AMITRIPTYLINE HYDROCHLORIDE [Suspect]
     Active Substance: AMITRIPTYLINE HYDROCHLORIDE
     Indication: Migraine
     Dates: end: 20241215

REACTIONS (3)
  - Disturbance in attention [Recovered/Resolved]
  - Myalgia [Recovered/Resolved]
  - Teeth brittle [Recovered/Resolved]

NARRATIVE: CASE EVENT DATE: 20241215
